FAERS Safety Report 17315311 (Version 2)
Quarter: 2020Q1

REPORT INFORMATION
  Report Type: Spontaneous
  Country: US (occurrence: US)
  Receive Date: 20200124
  Receipt Date: 20200212
  Transmission Date: 20200409
  Serious: No
  Sender: FDA-Public Use
  Company Number: US-JNJFOC-20200127997

PATIENT
  Age: 28 Year
  Sex: Male

DRUGS (1)
  1. STELARA [Suspect]
     Active Substance: USTEKINUMAB
     Indication: PSORIASIS
     Dosage: STRENGTH: 90 MILLIGRAM/ ML?FREQUENCY: OTHER
     Route: 058
     Dates: start: 201911

REACTIONS (3)
  - Injection site mass [Unknown]
  - Product administration error [Unknown]
  - Drug ineffective [Unknown]

NARRATIVE: CASE EVENT DATE: 20191127
